FAERS Safety Report 17438297 (Version 1)
Quarter: 2020Q1

REPORT INFORMATION
  Report Type: Report from Study
  Country: None (occurrence: NL)
  Receive Date: 20200220
  Receipt Date: 20200220
  Transmission Date: 20200409
  Serious: Yes (Death)
  Sender: FDA-Public Use
  Company Number: NL-ABBVIE-20K-114-3282454-00

PATIENT
  Age: 72 Year
  Sex: Female

DRUGS (4)
  1. MACROGOL [Concomitant]
     Active Substance: POLYETHYLENE GLYCOLS
     Indication: ABNORMAL FAECES
  2. SOG IODINE [Concomitant]
     Indication: STOMA SITE REACTION
  3. DUODOPA [Suspect]
     Active Substance: CARBIDOPA\LEVODOPA
     Indication: PARKINSON^S DISEASE
     Dosage: MD: 20 CD: 2.9 ED: 3?STRENGTH (CMP): 20 MG/ML 5 MG/ML
     Route: 050
     Dates: start: 20150910
  4. SILVER NITRATE. [Concomitant]
     Active Substance: SILVER NITRATE
     Indication: STOMA SITE REACTION

REACTIONS (1)
  - Death [Fatal]

NARRATIVE: CASE EVENT DATE: 20200211
